FAERS Safety Report 25608002 (Version 3)
Quarter: 2025Q3

REPORT INFORMATION
  Report Type: Report from Study
  Country: IN (occurrence: IN)
  Receive Date: 20250725
  Receipt Date: 20250916
  Transmission Date: 20251021
  Serious: Yes (Other)
  Sender: TAKEDA
  Company Number: IN-TAKEDA-2025TUS066184

PATIENT
  Sex: Male

DRUGS (2)
  1. VEDOLIZUMAB [Suspect]
     Active Substance: VEDOLIZUMAB
     Indication: Crohn^s disease
  2. VEDOLIZUMAB [Suspect]
     Active Substance: VEDOLIZUMAB

REACTIONS (10)
  - Bacterial infection [Unknown]
  - Microvillous inclusion disease [Unknown]
  - Wound secretion [Unknown]
  - Proctalgia [Unknown]
  - Diarrhoea [Unknown]
  - Frequent bowel movements [Unknown]
  - Weight decreased [Unknown]
  - Fungal infection [Unknown]
  - Disseminated tuberculosis [Unknown]
  - Nasopharyngitis [Recovered/Resolved]
